FAERS Safety Report 4849757-6 (Version None)
Quarter: 2005Q4

REPORT INFORMATION
  Report Type: 
  Country: None (occurrence: None)
  Receive Date: 20051108
  Receipt Date: 20050401
  Transmission Date: 20060501
  Serious: Yes (Hospitalization)
  Sender: FDA-Public Use
  Company Number: 2005-BP-05328RO

PATIENT
  Age: 47 Year
  Sex: Male

DRUGS (1)
  1. METHADONE HCL [Suspect]
     Indication: DRUG WITHDRAWAL MAINTENANCE THERAPY
     Dosage: 90 MG DAILY, PO
     Route: 048

REACTIONS (1)
  - GENERALISED OEDEMA [None]
